FAERS Safety Report 10251949 (Version 2)
Quarter: 2014Q4

REPORT INFORMATION
  Report Type: Report from Study
  Country: JP (occurrence: None)
  Receive Date: 20140619
  Receipt Date: 20141223
  Transmission Date: 20150528
  Serious: Yes (Hospitalization, Other)
  Sender: FDA-Public Use
  Company Number: 2010JP001560

PATIENT
  Age: 21 Year
  Sex: Female
  Weight: 45 kg

DRUGS (75)
  1. CHLOMY (CHLORAMPHENICOL) [Concomitant]
  2. THIATON (TIQUIZIUM BROMIDE) [Concomitant]
  3. NEOLAMIN 3B /00520001/ (HYDROXOCOBALAMIN ACETATE, PYRIDOXAL PHOSPHATE, THIAMINE DISULFIDE) [Concomitant]
  4. FESIN (SACCHARATED IRON OXIDE) [Concomitant]
  5. ZANTAC [Concomitant]
     Active Substance: RANITIDINE HYDROCHLORIDE
  6. EVOXAC (CEVIMELINE HYDROCHLORIDE) [Concomitant]
  7. MIYA BM (CLOSTRIDIUM BUTYRICUM) [Concomitant]
  8. VEEN D (CALCIUM CHLORIDE DIHYDRATE, GLUCOSE, POTASSIUM CHLORIDE, SODIUM ACETATE, SODIUM CHLORIDE) [Concomitant]
  9. ALBUMINAR (ALBUMIN HUMAN) [Concomitant]
  10. PENTCILLIN (PIPERACILLIN SODIUM) [Concomitant]
  11. GLUCOSE (GLUCOSE) [Concomitant]
  12. UROMITEXAN (MESNA) [Concomitant]
     Active Substance: MESNA
  13. SENNOSIDE (SENNOSIDE A+B) [Concomitant]
  14. WYTENS (GUANABENZ ACETATE) [Concomitant]
  15. DIQUAS (DIQUAFOSOL TETRASODIUM) [Concomitant]
  16. PL GRAN. (CAFFEINE, PARACETAMOL, PROMETHAZINE METHYLENE DISALICYLATE, SALICYLAMIDE) [Concomitant]
  17. HYALEIN MINI (HYALURONATE SODIUM) [Concomitant]
  18. GLYCEREB (FRUCTOSE, GLYCEROL) [Concomitant]
  19. CEFAMEZIN (CEFAZOLIN) [Concomitant]
     Active Substance: CEFAZOLIN
  20. HANP (CARPERITIDE) [Concomitant]
     Active Substance: CARPERITIDE
  21. GLOVENIN (IMMUNOGLOBULIN HUMAN NORMAL) [Concomitant]
  22. PANTOSIN (PANTETHINE) [Concomitant]
  23. ALFAROL [Concomitant]
     Active Substance: ALFACALCIDOL
  24. VENOGLOBULIN (IMMUNOGLOBULIN HUMAN NORMAL) [Concomitant]
  25. MUCOSOLVAN (AMBROXOL HYDROCHLORIDE) [Concomitant]
  26. ALLEGRA (FEXOFENADINE HYDROCHLORIDE) [Concomitant]
  27. FEBURIC (FEBUXOSTAT) [Concomitant]
     Active Substance: FEBUXOSTAT
  28. BONOTEO (MINODRONIC ACID) [Concomitant]
  29. DIART (AZOSEMIDE) [Concomitant]
  30. PRIMPERAN (METOCLOPRAMIDE) [Concomitant]
  31. OMEPRAZOL /00661202/ (OMEPRAZOLE SODIUM) [Concomitant]
  32. NEOAMIYU (ALANINE, ARGININE, ASPARTIC ACID, GLUTAMIC ACID, GLYCINE, HISTIDINE, ISOLEUCINE, LEUCINE, LYSINE ACETATE, METHIONINE, PHENYLALANINE, PROLINE, SERINE, THREONINE, TRYPTOPHAN, TYROSINE VALINE) [Concomitant]
  33. AMLODIN (AMLODIPINE BESILATE) [Concomitant]
  34. TAKEPRON (LANSOPRAZOLE) [Concomitant]
     Active Substance: LANSOPRAZOLE
  35. TRANSAMIN (TRANEXAMIC ACID) [Concomitant]
  36. DIOVAN [Concomitant]
     Active Substance: VALSARTAN
  37. FOSAMAC (ALENDRONATE SODIUM) [Concomitant]
  38. FLOMAX (CEFCAPENE PIVOXIL HYDROCHLORIDE) [Concomitant]
  39. GASLON [Concomitant]
     Active Substance: IRSOGLADINE MALEATE
  40. BREDININ (MIZORIBINE) [Concomitant]
     Active Substance: MIZORIBINE
  41. GASTER [Concomitant]
     Active Substance: FAMOTIDINE
  42. NU-LOTAN (LOSARTAN POTASSIUM) [Concomitant]
  43. LIPITOR [Concomitant]
     Active Substance: ATORVASTATIN CALCIUM
  44. FLUITRAN (TRICHLORMETHIAZIDE) [Concomitant]
  45. PROGRAF [Suspect]
     Active Substance: TACROLIMUS\TACROLIMUS ANHYDROUS
     Indication: LUPUS NEPHRITIS
     Route: 048
     Dates: start: 20081105, end: 20081202
  46. PREDNISOLONE SODIUM SUCCINATE [Suspect]
     Active Substance: PREDNISOLONE SODIUM SUCCINATE
     Indication: LUPUS NEPHRITIS
     Dates: start: 20120716, end: 20120717
  47. PERSANTIN [Suspect]
     Active Substance: DIPYRIDAMOLE
     Indication: LUPUS NEPHRITIS
     Route: 048
     Dates: end: 20090303
  48. FERROMIA (FERROUS SODIUM CITRATE) [Concomitant]
  49. LOXONIN (LOXOPROFEN SODIUM) [Concomitant]
     Active Substance: LOXOPROFEN SODIUM
  50. RINDERON (BETAMETHASONE SODIUM PHOSPHATE) [Concomitant]
  51. VEEN-F (CALCIUM CHLORIDE, MAGNESIUM CHLORIDE, POTASSIUM CHLORIDE, SODIUM ACETATE, SODIUM CHLORIDE) [Concomitant]
  52. ALDACTONE [Concomitant]
     Active Substance: SPIRONOLACTONE
  53. BAKTAR (SULFAMETHOXAZOLE, TRIMETHOPRIM) TABLET [Concomitant]
     Active Substance: SULFAMETHOXAZOLE\TRIMETHOPRIM
  54. METHYLPREDNISOLONE SODIUM SUCCINATE. [Suspect]
     Active Substance: METHYLPREDNISOLONE SODIUM SUCCINATE
     Indication: LUPUS NEPHRITIS
     Dates: start: 20120509, end: 20120509
  55. KAKKON-TO (HERBAL EXTRACTS NOS) [Concomitant]
  56. HYALEIN (HYALURONATE SODIUM) [Concomitant]
  57. PENTAGIN (PENTAZOCINE LACTATE) [Concomitant]
  58. MIDAZOLAM [Concomitant]
     Active Substance: MIDAZOLAM\MIDAZOLAM HYDROCHLORIDE
  59. PHYSIO (CALCIUM GLUCONATE, GLUCOSE, MAGNESIUM CHLORIDE, POTASSIUM CHLORIDE, POTASSIUM PHOSPHATE MONOBASIC, SODIUM ACETATE, SODIUM CHLORIDE) [Concomitant]
  60. LASIX [Concomitant]
     Active Substance: FUROSEMIDE
  61. NEXIUM [Concomitant]
     Active Substance: ESOMEPRAZOLE MAGNESIUM
  62. ASPARA K (POTASSIUM ASPARTATE) [Concomitant]
  63. ADONA (CARBAZOCHROME SODIUM SULFONATE) [Concomitant]
  64. TANATRIL (IMIDAPRIL HYDROCHLORIDE) [Concomitant]
  65. PERSANTIN-L (DIPYRIDAMOLE) MODIFIED-RELEASE CAPSULE, HARD [Suspect]
     Active Substance: DIPYRIDAMOLE
     Route: 048
     Dates: start: 20120811
  66. PREDNISOLONE. [Suspect]
     Active Substance: PREDNISOLONE
     Indication: LUPUS NEPHRITIS
     Route: 048
     Dates: end: 20090218
  67. TARIVID (OFLOXACIN) [Concomitant]
     Active Substance: OFLOXACIN
  68. ENDOXAN (CYCLOPHOSPHAMIDE MONOHYDRATE) [Concomitant]
  69. MYTEAR  (BORIC ACID) [Concomitant]
  70. PERDIPINE (NICARDIPINE) [Concomitant]
  71. METILON (METAMIZOLE SODIUM) [Concomitant]
  72. CATABON (DOPAMINE HYDROCHLORIDE) [Concomitant]
  73. ASPARA POTASSIUM (POTASSIUM ASPARTATE) [Concomitant]
  74. EDIROL (ELDECALCITOL) [Concomitant]
  75. ISODINE (POVIDONE-IODINE) [Concomitant]

REACTIONS (21)
  - Hyperlipidaemia [None]
  - Hyperuricaemia [None]
  - Gastroenteritis [None]
  - Otitis externa [None]
  - Menorrhagia [None]
  - Immunosuppressant drug level decreased [None]
  - Purpura [None]
  - Blood creatine phosphokinase increased [None]
  - Osteonecrosis [None]
  - Lupus nephritis [None]
  - Cerebral infarction [None]
  - Rhinitis allergic [None]
  - Iron deficiency anaemia [None]
  - Hypoalbuminaemia [None]
  - Condition aggravated [None]
  - Subarachnoid haemorrhage [None]
  - Pleural effusion [None]
  - Ear injury [None]
  - Nasopharyngitis [None]
  - Ascites [None]
  - Urine output decreased [None]

NARRATIVE: CASE EVENT DATE: 20081203
